FAERS Safety Report 15112890 (Version 1)
Quarter: 2018Q3

REPORT INFORMATION
  Report Type: Report from Study
  Country: None (occurrence: NL)
  Receive Date: 20180705
  Receipt Date: 20180705
  Transmission Date: 20181010
  Serious: Yes (Hospitalization, Other)
  Sender: FDA-Public Use
  Company Number: NL-ABBVIE-18S-114-2408292-00

PATIENT
  Age: 77 Year
  Sex: Male

DRUGS (1)
  1. DUODOPA [Suspect]
     Active Substance: CARBIDOPA\LEVODOPA
     Indication: PARKINSON^S DISEASE
     Route: 050
     Dates: start: 20160607

REACTIONS (6)
  - Syncope [Not Recovered/Not Resolved]
  - Unresponsive to stimuli [Unknown]
  - Cardiac arrest [Recovered/Resolved]
  - Syncope [Unknown]
  - Hyperkinesia [Not Recovered/Not Resolved]
  - Hyperkinesia [Unknown]

NARRATIVE: CASE EVENT DATE: 20180630
